FAERS Safety Report 9631028 (Version 1)
Quarter: 2013Q4

REPORT INFORMATION
  Report Type: Spontaneous
  Country: US (occurrence: None)
  Receive Date: 20131015
  Receipt Date: 20131015
  Transmission Date: 20140711
  Serious: No
  Sender: FDA-Public Use
  Company Number: 3004548776-2013-00004

PATIENT
  Age: 87 Year
  Sex: Male

DRUGS (1)
  1. ANTICOAGULANT CITRATE DEXTROSE SOLUTION 4B7898Q [Suspect]
     Indication: CYTAPHERESIS
     Dosage: FOR CYTAPHERESIS DEVICES

REACTIONS (2)
  - Haemorrhage [None]
  - Wrong drug administered [None]
